FAERS Safety Report 8591619-5 (Version None)
Quarter: 2012Q3

REPORT INFORMATION
  Report Type: 
  Country: None (occurrence: None)
  Receive Date: 20120814
  Receipt Date: 20120808
  Transmission Date: 20120928
  Serious: Yes (Hospitalization)
  Sender: FDA-Public Use
  Company Number: US-PFIZER INC-2012193858

PATIENT
  Sex: Male

DRUGS (4)
  1. CHANTIX [Suspect]
     Dosage: UNK
     Dates: start: 20120101
  2. CELEBREX [Suspect]
     Indication: JOINT INJURY
     Dosage: UNK, DAILY
     Dates: start: 20120101
  3. CELEBREX [Suspect]
     Dosage: UNK
  4. ALEVE [Suspect]
     Indication: JOINT INJURY
     Dosage: UNK

REACTIONS (2)
  - HEART RATE INCREASED [None]
  - FEELING ABNORMAL [None]
